FAERS Safety Report 22951483 (Version 2)
Quarter: 2023Q4

REPORT INFORMATION
  Report Type: Other
  Country: JP (occurrence: JP)
  Receive Date: 20230918
  Receipt Date: 20231129
  Transmission Date: 20240110
  Serious: Yes (Other)
  Sender: FDA-Public Use
  Company Number: JP-CHUGAI-2022028647AA

PATIENT
  Age: 64 Year
  Sex: Male
  Weight: 55 kg

DRUGS (6)
  1. POLIVY [Suspect]
     Active Substance: POLATUZUMAB VEDOTIN-PIIQ
     Indication: Diffuse large B-cell lymphoma recurrent
     Dosage: UNK
     Route: 041
     Dates: start: 20210907, end: 20220302
  2. ACTEMRA [Suspect]
     Active Substance: TOCILIZUMAB
     Indication: Product used for unknown indication
     Dosage: UNK
     Route: 065
  3. KYMRIAH [Suspect]
     Active Substance: TISAGENLECLEUCEL
     Indication: Diffuse large B-cell lymphoma
     Dosage: FULL DOSE ADMINISTRATION, TOTAL NUMBER OF CELLS ADMINISTERED: 2.7X10^8
     Route: 041
     Dates: start: 20210507
  4. CYCLOPHOSPHAMIDE [Concomitant]
     Active Substance: CYCLOPHOSPHAMIDE
     Dosage: UNK
     Route: 065
  5. BENDAMUSTINE HYDROCHLORIDE [Concomitant]
     Active Substance: BENDAMUSTINE HYDROCHLORIDE
     Indication: Diffuse large B-cell lymphoma recurrent
     Dosage: UNK
     Route: 065
     Dates: start: 20210907
  6. RITUXAN [Concomitant]
     Active Substance: RITUXIMAB
     Indication: Diffuse large B-cell lymphoma recurrent
     Dosage: UNK
     Route: 041
     Dates: start: 20210907

REACTIONS (9)
  - Diffuse large B-cell lymphoma recurrent [Recovered/Resolved]
  - Lymphocyte count decreased [Unknown]
  - Haemoglobin decreased [Unknown]
  - Platelet count decreased [Unknown]
  - Cytokine release syndrome [Recovered/Resolved]
  - Metastases to lymph nodes [Unknown]
  - Neutrophil count decreased [Unknown]
  - Hypogammaglobulinaemia [Recovered/Resolved]
  - Off label use [Unknown]

NARRATIVE: CASE EVENT DATE: 20210510
